FAERS Safety Report 21970962 (Version 2)
Quarter: 2023Q1

REPORT INFORMATION
  Report Type: Spontaneous
  Country: GB (occurrence: GB)
  Receive Date: 20230209
  Receipt Date: 20230221
  Transmission Date: 20230418
  Serious: Yes (Hospitalization, Other)
  Sender: FDA-Public Use
  Company Number: GB-002147023-NVSC2020GB370827

PATIENT
  Age: 54 Year
  Sex: Female
  Weight: 63.5 kg

DRUGS (34)
  1. CARBOPLATIN [Suspect]
     Active Substance: CARBOPLATIN
     Indication: Neoplasm malignant
     Dosage: UNK
     Route: 065
  2. CARBOPLATIN [Suspect]
     Active Substance: CARBOPLATIN
     Indication: Non-small cell lung cancer metastatic
  3. ETOPOSIDE [Suspect]
     Active Substance: ETOPOSIDE
     Indication: Non-small cell lung cancer
     Dosage: UNK
     Route: 065
  4. ETOPOSIDE [Suspect]
     Active Substance: ETOPOSIDE
     Indication: Non-small cell lung cancer metastatic
  5. ETOPOSIDE [Suspect]
     Active Substance: ETOPOSIDE
     Indication: Neoplasm malignant
  6. PACLITAXEL [Suspect]
     Active Substance: PACLITAXEL
     Indication: Non-small cell lung cancer
     Dosage: 10 MG
     Route: 065
     Dates: start: 20200325, end: 20200325
  7. PACLITAXEL [Suspect]
     Active Substance: PACLITAXEL
     Indication: Non-small cell lung cancer metastatic
  8. FILGRASTIM [Suspect]
     Active Substance: FILGRASTIM
     Indication: White blood cell count decreased
     Dosage: UNK
     Route: 065
     Dates: start: 20200512, end: 20200515
  9. FILGRASTIM [Suspect]
     Active Substance: FILGRASTIM
     Indication: Non-small cell lung cancer metastatic
     Dosage: UNK
     Route: 065
     Dates: start: 20200513, end: 20220515
  10. FAMOTIDINE [Suspect]
     Active Substance: FAMOTIDINE
     Indication: Product used for unknown indication
     Dosage: 40 MG, QD
     Route: 065
     Dates: start: 20200212, end: 20200212
  11. ATEZOLIZUMAB [Suspect]
     Active Substance: ATEZOLIZUMAB
     Indication: Neoplasm malignant
     Dosage: 1200 MG, TIW
     Route: 042
     Dates: start: 20200204
  12. ATEZOLIZUMAB [Suspect]
     Active Substance: ATEZOLIZUMAB
     Indication: Non-small cell lung cancer metastatic
     Dosage: 1200 MG, TIW
     Route: 042
     Dates: start: 20200212, end: 20200415
  13. ATEZOLIZUMAB [Suspect]
     Active Substance: ATEZOLIZUMAB
     Dosage: 1200 MG, TIW
     Route: 042
     Dates: start: 20200304
  14. ATEZOLIZUMAB [Suspect]
     Active Substance: ATEZOLIZUMAB
     Dosage: 1200 MG, TIW
     Route: 042
     Dates: start: 20200312
  15. ATEZOLIZUMAB [Suspect]
     Active Substance: ATEZOLIZUMAB
     Dosage: 1200 MG, TIW
     Route: 042
     Dates: start: 20200325
  16. ATEZOLIZUMAB [Suspect]
     Active Substance: ATEZOLIZUMAB
     Dosage: 1200 MG, TIW
     Route: 042
     Dates: start: 20200415
  17. ATEZOLIZUMAB [Suspect]
     Active Substance: ATEZOLIZUMAB
     Dosage: 1200 MG, TIW
     Route: 042
     Dates: start: 20200513, end: 20200715
  18. ATEZOLIZUMAB [Suspect]
     Active Substance: ATEZOLIZUMAB
     Dosage: 1200 MG, TIW
     Route: 042
     Dates: start: 20200603
  19. ATEZOLIZUMAB [Suspect]
     Active Substance: ATEZOLIZUMAB
     Dosage: 1200 MG, TIW
     Route: 042
     Dates: start: 20200624
  20. ATEZOLIZUMAB [Suspect]
     Active Substance: ATEZOLIZUMAB
     Dosage: 1200 MG, TIW
     Route: 042
     Dates: start: 20200715
  21. ATEZOLIZUMAB [Suspect]
     Active Substance: ATEZOLIZUMAB
     Dosage: 1200 MG, TIW
     Route: 042
     Dates: start: 20200805
  22. ATEZOLIZUMAB [Suspect]
     Active Substance: ATEZOLIZUMAB
     Dosage: 1200 MG, TIW
     Route: 042
     Dates: start: 20200826
  23. ATEZOLIZUMAB [Suspect]
     Active Substance: ATEZOLIZUMAB
     Dosage: 1200 MG, TIW
     Route: 042
     Dates: start: 20200916
  24. BEVACIZUMAB [Suspect]
     Active Substance: BEVACIZUMAB
     Indication: Neoplasm malignant
     Dosage: UNK
     Route: 041
  25. BEVACIZUMAB [Suspect]
     Active Substance: BEVACIZUMAB
     Indication: Non-small cell lung cancer
     Dosage: 1 DOSAGE FORM
     Route: 065
     Dates: start: 20200204
  26. BEVACIZUMAB [Suspect]
     Active Substance: BEVACIZUMAB
     Indication: Non-small cell lung cancer metastatic
  27. PROLIA [Suspect]
     Active Substance: DENOSUMAB
     Indication: Bone pain
     Dosage: UNK
     Route: 065
     Dates: start: 20200803
  28. PROLIA [Suspect]
     Active Substance: DENOSUMAB
     Indication: Non-small cell lung cancer metastatic
  29. RANITIDINE [Concomitant]
     Active Substance: RANITIDINE
     Indication: Product used for unknown indication
     Dosage: 50 MG
     Route: 065
     Dates: start: 20200304, end: 20200304
  30. RANITIDINE [Concomitant]
     Active Substance: RANITIDINE
     Dosage: 50 MG
     Route: 065
     Dates: start: 20200325, end: 20200325
  31. CHLORPHENIRAMINE MALEATE [Concomitant]
     Active Substance: CHLORPHENIRAMINE MALEATE
     Indication: Product used for unknown indication
     Dosage: 10 MG
     Route: 065
     Dates: start: 20200304, end: 20200304
  32. CHLORPHENIRAMINE MALEATE [Concomitant]
     Active Substance: CHLORPHENIRAMINE MALEATE
     Dosage: 10 MG
     Route: 065
     Dates: start: 20200325, end: 20200325
  33. ONDANSETRON [Concomitant]
     Active Substance: ONDANSETRON
     Indication: Product used for unknown indication
     Dosage: 8 MG
     Route: 065
     Dates: start: 20200212, end: 20200212
  34. MORPHINE [Concomitant]
     Active Substance: MORPHINE
     Indication: Pain in extremity
     Dosage: UNK
     Route: 065
     Dates: start: 20200829

REACTIONS (31)
  - Haemoglobin decreased [Not Recovered/Not Resolved]
  - Autoimmune haemolytic anaemia [Recovering/Resolving]
  - Malignant neoplasm progression [Unknown]
  - Intentional product use issue [Unknown]
  - Hepatic failure [Not Recovered/Not Resolved]
  - White blood cell count decreased [Recovered/Resolved]
  - Platelet count decreased [Unknown]
  - White blood cell count decreased [Recovered/Resolved]
  - Mucosal inflammation [Not Recovered/Not Resolved]
  - Ear pain [Not Recovered/Not Resolved]
  - Fatigue [Not Recovered/Not Resolved]
  - Neuropathy peripheral [Unknown]
  - Haemoglobin decreased [Recovered/Resolved]
  - Haemoglobin decreased [Recovered/Resolved]
  - Nausea [Not Recovered/Not Resolved]
  - Ear pain [Not Recovered/Not Resolved]
  - Blood magnesium decreased [Recovering/Resolving]
  - Weight decreased [Recovered/Resolved]
  - Diarrhoea [Unknown]
  - Disease progression [Unknown]
  - Mucosal inflammation [Not Recovered/Not Resolved]
  - Bone pain [Not Recovered/Not Resolved]
  - Pain in extremity [Unknown]
  - Decreased appetite [Not Recovered/Not Resolved]
  - Abdominal pain upper [Not Recovered/Not Resolved]
  - Anaemia [Recovered/Resolved]
  - Vomiting [Recovering/Resolving]
  - Fatigue [Not Recovered/Not Resolved]
  - Ear pain [Unknown]
  - Decreased appetite [Not Recovered/Not Resolved]
  - Off label use [Unknown]

NARRATIVE: CASE EVENT DATE: 20200213
